FAERS Safety Report 5339256-X (Version None)
Quarter: 2007Q2

REPORT INFORMATION
  Report Type: 
  Country: None (occurrence: None)
  Receive Date: 20070525
  Receipt Date: 20070509
  Transmission Date: 20071010
  Serious: Yes (Hospitalization)
  Sender: FDA-Public Use
  Company Number: 2007RR-07502

PATIENT
  Age: 9 Year
  Sex: Female

DRUGS (3)
  1. CEFTRIAXONE (CEFTRIAXONE) UNKNOWN [Suspect]
     Indication: MENINGOCOCCAL SEPSIS
     Dosage: INTRAVENOUS
     Route: 042
  2. IBUPROFEN [Suspect]
     Indication: MENINGOCOCCAL SEPSIS
     Dosage: ORAL
     Route: 048
  3. ACETAMINOPHEN [Suspect]
     Indication: MENINGOCOCCAL SEPSIS
     Dosage: ORAL
     Route: 048

REACTIONS (4)
  - HYDRONEPHROSIS [None]
  - RENAL FAILURE ACUTE [None]
  - RENAL PAPILLARY NECROSIS [None]
  - URETERIC OBSTRUCTION [None]
